FAERS Safety Report 8601283-4 (Version None)
Quarter: 2012Q3

REPORT INFORMATION
  Report Type: 
  Country: None (occurrence: None)
  Receive Date: 20120817
  Receipt Date: 20120810
  Transmission Date: 20120928
  Serious: Yes (Hospitalization, Other)
  Sender: FDA-Public Use
  Company Number: FR-GENZYME-CAMP-1002380

PATIENT
  Sex: Male

DRUGS (7)
  1. BACTRIM [Concomitant]
     Indication: ANTIFUNGAL PROPHYLAXIS
     Dosage: 1 DOSE FORM
     Route: 048
     Dates: start: 20080715
  2. VFEND [Concomitant]
     Indication: ASPERGILLOSIS
     Dosage: 400 MG, QD
     Route: 048
     Dates: start: 20081222
  3. CAMPATH [Suspect]
     Indication: CHRONIC LYMPHOCYTIC LEUKAEMIA
     Dosage: 30 MG/M2, UNK
     Route: 058
     Dates: start: 20080715, end: 20081203
  4. CYCLOPHOSPHAMIDE [Suspect]
     Indication: CHRONIC LYMPHOCYTIC LEUKAEMIA
     Dosage: 500 MG/M2, UNK
     Route: 048
     Dates: start: 20080715, end: 20081203
  5. VALGANCICLOVIR [Concomitant]
     Indication: ANTIVIRAL PROPHYLAXIS
     Dosage: 450 MG, QD
     Route: 048
     Dates: start: 20081223
  6. FOLIC ACID [Concomitant]
     Indication: PROPHYLAXIS
     Dosage: 10 MG, QD
     Route: 048
     Dates: start: 20080715
  7. FLUDARA [Suspect]
     Indication: CHRONIC LYMPHOCYTIC LEUKAEMIA
     Dosage: 80 MG/M2, UNK
     Route: 048
     Dates: start: 20080715, end: 20081203

REACTIONS (9)
  - HYDRONEPHROSIS [None]
  - HUMAN POLYOMAVIRUS INFECTION [None]
  - URINARY TRACT INFECTION [None]
  - RENAL IMPAIRMENT [None]
  - CYSTITIS NONINFECTIVE [None]
  - ADENOVIRUS INFECTION [None]
  - PROSTATOMEGALY [None]
  - LEUKOPENIA [None]
  - URETHRITIS [None]
